FAERS Safety Report 14381818 (Version 1)
Quarter: 2018Q1

REPORT INFORMATION
  Report Type: Spontaneous
  Country: US (occurrence: US)
  Receive Date: 20180111
  Receipt Date: 20180111
  Transmission Date: 20180509
  Serious: Yes (Other)
  Sender: FDA-Public Use
  Company Number: None

PATIENT
  Age: 69 Year
  Sex: Female
  Weight: 81 kg

DRUGS (7)
  1. ROSUVASTATIN CALCIUM. [Concomitant]
     Active Substance: ROSUVASTATIN CALCIUM
  2. SPIRONOLACTONE. [Concomitant]
     Active Substance: SPIRONOLACTONE
  3. METOPROLOL SUCCINATE ER [Suspect]
     Active Substance: METOPROLOL SUCCINATE
     Indication: HYPERTENSION
     Dosage: ?          QUANTITY:100 TABLET(S);?
     Route: 048
     Dates: start: 20160508, end: 20171215
  4. AMLODIPENE BESYLATE [Concomitant]
  5. CO-Q10 [Concomitant]
  6. VITAMIN E [Concomitant]
     Active Substance: .ALPHA.-TOCOPHEROL
  7. LOW DOSE ASPIRIN [Concomitant]
     Active Substance: ASPIRIN

REACTIONS (1)
  - Hallucination, auditory [None]

NARRATIVE: CASE EVENT DATE: 20170501
